FAERS Safety Report 19351364 (Version 1)
Quarter: 2021Q2

REPORT INFORMATION
  Report Type: Spontaneous
  Country: GB (occurrence: GB)
  Receive Date: 20210531
  Receipt Date: 20210531
  Transmission Date: 20210717
  Serious: Yes (Death, Other)
  Sender: FDA-Public Use
  Company Number: GB-ACCORD-226351

PATIENT
  Age: 72 Year

DRUGS (3)
  1. DIETHANOLAMINE FUSIDATE/FUSIDATE SODIUM/FUSIDIC ACID [Interacting]
     Active Substance: DIETHANOLAMINE FUSIDATE\FUSIDATE SODIUM\FUSIDIC ACID
     Indication: OSTEOMYELITIS
  2. ATORVASTATIN/ATORVASTATIN CALCIUM [Suspect]
     Active Substance: ATORVASTATIN CALCIUM
     Indication: PRODUCT USED FOR UNKNOWN INDICATION
  3. FLUCLOXACILLIN [Concomitant]
     Active Substance: FLUCLOXACILLIN
     Indication: OSTEOMYELITIS

REACTIONS (2)
  - Labelled drug-drug interaction medication error [Unknown]
  - Rhabdomyolysis [Fatal]
